FAERS Safety Report 20016303 (Version 1)
Quarter: 2021Q4

REPORT INFORMATION
  Report Type: Spontaneous
  Country: US (occurrence: None)
  Receive Date: 20211103
  Receipt Date: 20211103
  Transmission Date: 20220303
  Serious: No
  Sender: FDA-Public Use
  Company Number: None

PATIENT
  Age: 14 Year
  Sex: Male

DRUGS (1)
  1. NORDITROPIN [Suspect]
     Active Substance: SOMATROPIN
     Dosage: OTHER QUANTITY : PEN;?FREQUENCY : DAILY;?
     Route: 058

REACTIONS (2)
  - Abdominal pain upper [None]
  - Product use issue [None]

NARRATIVE: CASE EVENT DATE: 20211103
